FAERS Safety Report 17583687 (Version 4)
Quarter: 2020Q2

REPORT INFORMATION
  Report Type: Spontaneous
  Country: US (occurrence: US)
  Receive Date: 20200326
  Receipt Date: 20200605
  Transmission Date: 20200713
  Serious: Yes (Death, Hospitalization, Other)
  Sender: FDA-Public Use
  Company Number: US-UNITED THERAPEUTICS-UNT-2020-003216

PATIENT
  Age: 71 Year
  Sex: Female
  Weight: 92.52 kg

DRUGS (4)
  1. AMLODIPINE [Concomitant]
     Active Substance: AMLODIPINE BESYLATE
     Indication: PRODUCT USED FOR UNKNOWN INDICATION
     Dosage: UNK
     Route: 065
  2. ADCIRCA [Concomitant]
     Active Substance: TADALAFIL
     Indication: PULMONARY ARTERIAL HYPERTENSION
     Dosage: UNK
     Route: 065
  3. REMODULIN [Suspect]
     Active Substance: TREPROSTINIL
     Indication: PULMONARY ARTERIAL HYPERTENSION
     Dosage: 0.016 ?G/KG, CONTINUING
     Route: 041
     Dates: start: 20191230
  4. REMODULIN [Suspect]
     Active Substance: TREPROSTINIL
     Dosage: 0.020 ?G/KG, CONTINUING
     Route: 041

REACTIONS (8)
  - Fluid retention [Fatal]
  - Right ventricular failure [Fatal]
  - Atrial fibrillation [Recovered/Resolved]
  - Renal failure [Fatal]
  - Pulmonary hypertension [Fatal]
  - Abdominal discomfort [Unknown]
  - Diarrhoea [Unknown]
  - Renal impairment [Fatal]

NARRATIVE: CASE EVENT DATE: 202002
